FAERS Safety Report 4715933-6 (Version None)
Quarter: 2005Q3

REPORT INFORMATION
  Report Type: 
  Country: None (occurrence: None)
  Receive Date: 20050718
  Receipt Date: 20050204
  Transmission Date: 20060218
  Serious: Yes (Hospitalization, Disabling, Other)
  Sender: FDA-Public Use
  Company Number: US-MERCK-0502USA00679

PATIENT
  Age: 60 Year
  Sex: Female
  Weight: 115 kg

DRUGS (13)
  1. VIOXX [Suspect]
     Indication: ARTHRITIS
     Route: 048
     Dates: start: 20020601, end: 20021201
  2. VIOXX [Suspect]
     Route: 048
     Dates: start: 20030901, end: 20041001
  3. VIOXX [Suspect]
     Indication: GOUT
     Route: 048
     Dates: start: 20020601, end: 20021201
  4. VIOXX [Suspect]
     Route: 048
     Dates: start: 20030901, end: 20041001
  5. ZESTRIL [Concomitant]
     Indication: HYPERTENSION
     Route: 065
     Dates: start: 20020501, end: 20020701
  6. ZOCOR [Concomitant]
     Route: 048
     Dates: end: 20020901
  7. LIPITOR [Concomitant]
     Indication: BLOOD CHOLESTEROL INCREASED
     Route: 065
     Dates: start: 20000601
  8. PAXIL [Concomitant]
     Indication: DEPRESSION
     Route: 065
  9. PAXIL [Concomitant]
     Indication: ANXIETY DISORDER
     Route: 065
  10. XANAX [Concomitant]
     Indication: DEPRESSION
     Route: 065
  11. XANAX [Concomitant]
     Indication: ANXIETY DISORDER
     Route: 065
  12. AVANDIA [Concomitant]
     Indication: DIABETES MELLITUS
     Route: 065
     Dates: start: 19930201
  13. PREMARIN [Concomitant]
     Indication: MENOPAUSE
     Route: 065
     Dates: start: 20010901

REACTIONS (15)
  - ANXIETY [None]
  - CARDIAC DISORDER [None]
  - CARDIAC FAILURE CONGESTIVE [None]
  - DEPRESSION [None]
  - DIABETES MELLITUS [None]
  - DISABILITY [None]
  - FEAR [None]
  - FOOT FRACTURE [None]
  - GALLBLADDER DISORDER [None]
  - HYPERTENSION [None]
  - MYOCARDIAL INFARCTION [None]
  - PAIN [None]
  - RENAL DISORDER [None]
  - THROMBOSIS [None]
  - ULCER [None]
